FAERS Safety Report 8533497-6 (Version None)
Quarter: 2012Q3

REPORT INFORMATION
  Report Type: 
  Country: None (occurrence: None)
  Receive Date: 20120724
  Receipt Date: 20120713
  Transmission Date: 20120928
  Serious: Yes (Hospitalization)
  Sender: FDA-Public Use
  Company Number: IT-ELI_LILLY_AND_COMPANY-IT201203008221

PATIENT
  Sex: Male

DRUGS (11)
  1. AMLODIPINE [Concomitant]
     Dosage: UNK, UNKNOWN
  2. SIMVASTATIN [Concomitant]
     Dosage: UNK, 1 TABLET (AT 9 PM)
  3. METFORMIN HYDROCHLORIDE [Concomitant]
     Indication: DIABETES MELLITUS
     Dosage: 1 DF, TID
  4. OMEPRAZOLE [Concomitant]
     Dosage: 20 MG, 1 TABLET (ORE 12 AM)
  5. GEMZAR [Suspect]
     Indication: PLEURAL MESOTHELIOMA MALIGNANT
     Dosage: 1850 MG, UNKNOWN
     Route: 042
     Dates: start: 20120324, end: 20120324
  6. METOPROLOL SUCCINATE [Concomitant]
     Dosage: UNK, AT 8 AM-8 PM
  7. DIUREMID [Concomitant]
     Dosage: 10 MG, HALF TABLET (AT 12 AM)
  8. FOLINA [Concomitant]
     Dosage: 5 MG, UNK
  9. MONOCINQUE [Concomitant]
     Dosage: 80 MG, UNK
  10. ASPIRIN [Concomitant]
     Dosage: 100 MG, 1 TABLET AFTER LUNCH
  11. ZOFRAN [Concomitant]
     Dosage: 4 MG, UNK

REACTIONS (3)
  - PYREXIA [None]
  - ARTHRALGIA [None]
  - MYALGIA [None]
